FAERS Safety Report 10213435 (Version 4)
Quarter: 2014Q3

REPORT INFORMATION
  Report Type: Spontaneous
  Country: IT (occurrence: None)
  Receive Date: 20140529
  Receipt Date: 20140807
  Transmission Date: 20150326
  Serious: Yes (Hospitalization, Other)
  Sender: FDA-Public Use
  Company Number: 2014AP003033

PATIENT
  Age: 96 Year
  Sex: Female
  Weight: 55 kg

DRUGS (6)
  1. OMEPRAZOLE SODIUM (OMEPRAZOLE SODIUM) [Concomitant]
  2. CARDIOASPIRIN (ACETYLSALICYLIC ACID) [Concomitant]
     Active Substance: ASPIRIN
  3. LASIX  (FUROSEMIDE) TABLET [Concomitant]
  4. QUINAPRIL + HIDROCLOROTIAZIDA GENERIS (HYDROCHLOROTHIAZIDE, QUINAPRIL HYDROCHLORIDE) [Concomitant]
  5. LEVOFLOXACIN (LEVOFLOXACIN) TABLET [Suspect]
     Active Substance: LEVOFLOXACIN
     Indication: BRONCHITIS
     Route: 048
     Dates: start: 20140428, end: 20140502
  6. VALSARTAN (VALSARTAN) [Concomitant]
     Active Substance: VALSARTAN

REACTIONS (10)
  - Bronchitis [None]
  - Dyskinesia [None]
  - Confusional state [None]
  - Tremor [None]
  - Atrial fibrillation [None]
  - Respiratory failure [None]
  - Gait disturbance [None]
  - Dysphagia [None]
  - Blood creatinine increased [None]
  - Medication error [None]

NARRATIVE: CASE EVENT DATE: 20140429
